FAERS Safety Report 9413681 (Version 3)
Quarter: 2013Q3

REPORT INFORMATION
  Report Type: Report from Study
  Country: NL (occurrence: NL)
  Receive Date: 20130722
  Receipt Date: 20130906
  Transmission Date: 20140515
  Serious: Yes (Other)
  Sender: FDA-Public Use
  Company Number: NL-BAXTER-2013BAX028009

PATIENT
  Sex: Female

DRUGS (6)
  1. GAMMAGARD S/D 10, POEDER VOOR INFUSIEVLOEISTOF [Suspect]
     Indication: MULTIPLE SCLEROSIS
     Route: 042
     Dates: start: 20130529, end: 20130529
  2. GAMMAGARD S/D 10, POEDER VOOR INFUSIEVLOEISTOF [Suspect]
     Indication: OFF LABEL USE
     Route: 042
     Dates: start: 20130703, end: 20130703
  3. GAMMAGARD S/D 10, POEDER VOOR INFUSIEVLOEISTOF [Suspect]
     Route: 042
     Dates: end: 20130703
  4. GAMMAGARD S/D 5, POEDER VOOR INFUSIEVLOEISTOF [Suspect]
     Indication: MULTIPLE SCLEROSIS
     Route: 042
     Dates: start: 20130529, end: 20130529
  5. GAMMAGARD S/D 5, POEDER VOOR INFUSIEVLOEISTOF [Suspect]
     Indication: OFF LABEL USE
     Route: 042
     Dates: start: 20130703, end: 20130703
  6. GAMMAGARD S/D 5, POEDER VOOR INFUSIEVLOEISTOF [Suspect]
     Route: 042
     Dates: end: 20130703

REACTIONS (1)
  - Drug ineffective [Unknown]
